FAERS Safety Report 6988700-0 (Version None)
Quarter: 2010Q3

REPORT INFORMATION
  Report Type: 
  Country: None (occurrence: None)
  Receive Date: 20100916
  Receipt Date: 20100910
  Transmission Date: 20110219
  Serious: Yes (Hospitalization)
  Sender: FDA-Public Use
  Company Number: JP-EISAI INC.-E2090-01317-SPO-JP

PATIENT
  Age: 65 Year
  Sex: Female

DRUGS (3)
  1. TRERIEF [Suspect]
     Indication: PARKINSON'S DISEASE
     Route: 048
     Dates: start: 20100101
  2. RIVOTRIL [Concomitant]
  3. CARBIDOPA AND LEVODOPA [Concomitant]

REACTIONS (1)
  - RENAL FAILURE ACUTE [None]
